FAERS Safety Report 19178933 (Version 2)
Quarter: 2021Q3

REPORT INFORMATION
  Report Type: Report from Study
  Country: IR (occurrence: IR)
  Receive Date: 20210426
  Receipt Date: 20210701
  Transmission Date: 20211014
  Serious: No
  Sender: FDA-Public Use
  Company Number: IR-EMD SERONO-9233825

PATIENT
  Age: 47 Year
  Sex: Female

DRUGS (4)
  1. REBIF [Suspect]
     Active Substance: INTERFERON BETA-1A
     Indication: MULTIPLE SCLEROSIS
     Dosage: PRE?FILLED SYRINGE
     Dates: start: 20160830
  2. DIABEZID [Concomitant]
     Indication: DIABETES MELLITUS
  3. VITAMIN D                          /00318501/ [Concomitant]
     Active Substance: CHOLECALCIFEROL
     Indication: PRODUCT USED FOR UNKNOWN INDICATION
  4. NOVAFEN                            /00109201/ [Concomitant]
     Indication: PREMEDICATION
     Dosage: ONE BEFORE REBIF INJECTION

REACTIONS (1)
  - Headache [Recovering/Resolving]

NARRATIVE: CASE EVENT DATE: 20210406
